FAERS Safety Report 10184373 (Version 3)
Quarter: 2014Q2

REPORT INFORMATION
  Report Type: Spontaneous
  Country: DE (occurrence: DE)
  Receive Date: 20140521
  Receipt Date: 20140611
  Transmission Date: 20141212
  Serious: Yes (Other)
  Sender: FDA-Public Use
  Company Number: DE-AMGEN-DEUSP2014035395

PATIENT
  Age: 77 Year
  Sex: Male

DRUGS (4)
  1. XGEVA [Suspect]
     Indication: PROSTATE CANCER
     Dosage: 120 MG, Q4WK
     Route: 058
     Dates: start: 20120820, end: 20140106
  2. TRENANTONE [Concomitant]
     Indication: PROSTATE CANCER
     Dosage: 10.72 MG, 3 MONTHS
     Route: 058
     Dates: start: 20101018
  3. PALLADON [Concomitant]
     Indication: BONE PAIN
     Dosage: 8 MG 1/DAY; 4 MG 2/DAY
     Route: 048
     Dates: start: 20100729
  4. PREDNISON [Concomitant]
     Dosage: 5 MG/L, UNK
     Dates: end: 201308

REACTIONS (1)
  - Osteonecrosis of jaw [Not Recovered/Not Resolved]
